FAERS Safety Report 6935072-3 (Version None)
Quarter: 2010Q3

REPORT INFORMATION
  Report Type: 
  Country: None (occurrence: None)
  Receive Date: 20100822
  Receipt Date: 20100811
  Transmission Date: 20110219
  Serious: Yes (Hospitalization)
  Sender: FDA-Public Use
  Company Number: PHHO2009TW14293

PATIENT
  Sex: Male
  Weight: 63.1 kg

DRUGS (7)
  1. AFINITOR [Suspect]
     Indication: METASTATIC RENAL CELL CARCINOMA
     Dosage: UNK
     Route: 048
     Dates: start: 20090407, end: 20091116
  2. GLUCOPHAGE [Concomitant]
     Indication: DIABETES MELLITUS
  3. ACARBOSE [Concomitant]
  4. MAGNESIUM OXIDE [Concomitant]
  5. PROPRANOLOL [Concomitant]
     Indication: HYPERTENSION
  6. HUMULIN R [Concomitant]
     Indication: DIABETES MELLITUS
  7. TAMSULOSIN HCL [Concomitant]
     Indication: HYPERTENSION

REACTIONS (8)
  - ALTERED STATE OF CONSCIOUSNESS [None]
  - APPETITE DISORDER [None]
  - HEPATIC ENCEPHALOPATHY [None]
  - HYPOGLYCAEMIA [None]
  - LETHARGY [None]
  - LIVER FUNCTION TEST ABNORMAL [None]
  - SOMNOLENCE [None]
  - YELLOW SKIN [None]
